FAERS Safety Report 17483858 (Version 1)
Quarter: 2020Q1

REPORT INFORMATION
  Report Type: Spontaneous
  Country: US (occurrence: US)
  Receive Date: 20200302
  Receipt Date: 20200302
  Transmission Date: 20200409
  Serious: Yes (Hospitalization)
  Sender: FDA-Public Use
  Company Number: US-PROCTER_AND_GAMBLE-GS20022068

PATIENT

DRUGS (1)
  1. VICKS NYQUIL SEVERE COLD AND FLU [Suspect]
     Active Substance: ACETAMINOPHEN\DEXTROMETHORPHAN HYDROBROMIDE\DOXYLAMINE SUCCINATE\PHENYLEPHRINE
     Dosage: TOOK IT A FEW TIMES OVER A WEEK PERIOD
     Route: 048
     Dates: start: 2018

REACTIONS (4)
  - Vomiting [Recovering/Resolving]
  - Kidney infection [Recovering/Resolving]
  - Gastric cyst [Recovering/Resolving]
  - Blood urine present [Recovering/Resolving]

NARRATIVE: CASE EVENT DATE: 2018
